FAERS Safety Report 6417938-6 (Version None)
Quarter: 2009Q4

REPORT INFORMATION
  Report Type: 
  Country: None (occurrence: None)
  Receive Date: 20091026
  Receipt Date: 20091013
  Transmission Date: 20100525
  Serious: Yes (Hospitalization, Disabling, Other)
  Sender: FDA-Public Use
  Company Number: ADR37882009

PATIENT
  Age: 50 Year
  Sex: Male

DRUGS (6)
  1. SIMVASTATIN [Suspect]
     Indication: HYPERCHOLESTEROLAEMIA
     Dosage: 40 MG ORAL
     Route: 048
     Dates: start: 20070814, end: 20071002
  2. CITALOPRAM HYDROBROMIDE [Concomitant]
  3. ISOSORBIDE MONONITRATE [Concomitant]
  4. METOPROLOL TARTRATE [Concomitant]
  5. NICORANDIL [Concomitant]
  6. OMEPRAZOLE [Concomitant]

REACTIONS (1)
  - ANKLE FRACTURE [None]
